FAERS Safety Report 21537103 (Version 2)
Quarter: 2022Q4

REPORT INFORMATION
  Report Type: Spontaneous
  Country: NP (occurrence: NP)
  Receive Date: 20221101
  Receipt Date: 20221103
  Transmission Date: 20230113
  Serious: Yes (Other)
  Sender: FDA-Public Use
  Company Number: NP-MLMSERVICE-20221019-3869451-1

PATIENT
  Age: 62 Year
  Sex: Male

DRUGS (3)
  1. ADRIAMYCIN [Suspect]
     Active Substance: DOXORUBICIN HYDROCHLORIDE
     Indication: Liposarcoma
     Dosage: 30 MG FROM DAY 1-3
     Route: 042
  2. MESNA [Suspect]
     Active Substance: MESNA
     Indication: Liposarcoma
     Dosage: 200 MG FROM DAY 1-4
  3. IFOSFAMIDE [Suspect]
     Active Substance: IFOSFAMIDE
     Indication: Liposarcoma
     Dosage: 2 G FROM DAY 1-4
     Route: 042

REACTIONS (1)
  - Systemic toxicity [Unknown]
